FAERS Safety Report 13017617 (Version 1)
Quarter: 2016Q4

REPORT INFORMATION
  Report Type: Spontaneous
  Country: US (occurrence: US)
  Receive Date: 20161212
  Receipt Date: 20161212
  Transmission Date: 20170207
  Serious: Yes (Other)
  Sender: FDA-Public Use
  Company Number: None

PATIENT
  Age: 56 Year
  Sex: Male
  Weight: 99.79 kg

DRUGS (1)
  1. ARIPIPRAZOLE 5 MG SCRIPT [Suspect]
     Active Substance: ARIPIPRAZOLE
     Indication: DEPRESSION
     Dosage: ARIPIPRAZOLE - 1 PER DAY IN MORNING - PO - QD
     Route: 048
     Dates: start: 20160630, end: 20160830

REACTIONS (2)
  - Accidental overdose [None]
  - Incorrect dose administered [None]

NARRATIVE: CASE EVENT DATE: 20160630
